FAERS Safety Report 7527927-6 (Version None)
Quarter: 2011Q2

REPORT INFORMATION
  Report Type: 
  Country: None (occurrence: None)
  Receive Date: 20110607
  Receipt Date: 20030204
  Transmission Date: 20111010
  Serious: Yes (Death)
  Sender: FDA-Public Use
  Company Number: PHEH2003US01287

PATIENT
  Sex: Male

DRUGS (8)
  1. CLOZARIL [Suspect]
     Indication: SCHIZOAFFECTIVE DISORDER
     Dosage: 25 MG, BID
     Route: 048
     Dates: start: 20000107
  2. ZANTAC [Concomitant]
  3. PERI-COLACE [Concomitant]
  4. VICODIN [Concomitant]
  5. ZOLOFT [Concomitant]
  6. COGENTIN [Concomitant]
  7. TYLENOL-500 [Concomitant]
  8. VITAMIN E [Concomitant]

REACTIONS (1)
  - DEATH [None]
